FAERS Safety Report 7904412-0 (Version None)
Quarter: 2011Q4

REPORT INFORMATION
  Report Type: 
  Country: None (occurrence: None)
  Receive Date: 20111109
  Receipt Date: 20111031
  Transmission Date: 20120403
  Serious: Yes (Other)
  Sender: FDA-Public Use
  Company Number: HR-ASTRAZENECA-2011SE65797

PATIENT
  Age: 76 Year
  Sex: Male

DRUGS (6)
  1. PLENDIL [Suspect]
     Route: 048
     Dates: start: 20110601
  2. SIMVASTATIN [Concomitant]
     Indication: DYSLIPIDAEMIA
     Route: 048
  3. LOSARTAN POTASSIUM AND HYDROCHLOROTHIAZIDE [Concomitant]
     Indication: HYPERTENSION
     Dosage: 100 MG+ 25 MG EVERY DAY
     Route: 048
  4. PLENDIL [Suspect]
     Indication: HYPERTENSION
     Route: 048
     Dates: start: 20110101, end: 20110601
  5. PHYSIOTENS [Concomitant]
     Indication: HYPERTENSION
     Route: 048
  6. CARDIOPIRIN [Concomitant]
     Route: 048

REACTIONS (1)
  - ATRIAL FIBRILLATION [None]
